FAERS Safety Report 11695761 (Version 1)
Quarter: 2015Q4

REPORT INFORMATION
  Report Type: Spontaneous
  Country: US (occurrence: None)
  Receive Date: 20151103
  Receipt Date: 20151103
  Transmission Date: 20160304
  Serious: No
  Sender: FDA-Public Use
  Company Number: None

PATIENT
  Age: 66 Year
  Sex: Male

DRUGS (1)
  1. SUTENT [Suspect]
     Active Substance: SUNITINIB MALATE
     Dosage: 1 CAP QD PO
     Route: 048
     Dates: start: 201509

REACTIONS (2)
  - Pyrexia [None]
  - Decreased appetite [None]

NARRATIVE: CASE EVENT DATE: 20151101
